FAERS Safety Report 13519214 (Version 1)
Quarter: 2017Q2

REPORT INFORMATION
  Report Type: Spontaneous
  Country: JP (occurrence: JP)
  Receive Date: 20170505
  Receipt Date: 20170505
  Transmission Date: 20170830
  Serious: Yes (Other)
  Sender: FDA-Public Use
  Company Number: JP-PFIZER INC-2017147147

PATIENT
  Age: 9 Year
  Sex: Male

DRUGS (1)
  1. EPIPEN [Suspect]
     Active Substance: EPINEPHRINE
     Dosage: UNK
     Dates: start: 201610

REACTIONS (5)
  - Anaphylactic shock [Unknown]
  - Device use issue [Unknown]
  - Product quality issue [Unknown]
  - Drug ineffective [Unknown]
  - Device failure [Unknown]

NARRATIVE: CASE EVENT DATE: 201610
